FAERS Safety Report 4555116-6 (Version None)
Quarter: 2005Q1

REPORT INFORMATION
  Report Type: 
  Country: None (occurrence: None)
  Receive Date: 20041228
  Receipt Date: 20040517
  Transmission Date: 20050727
  Serious: Yes (Hospitalization, Other)
  Sender: FDA-Public Use
  Company Number: PHEH2004US04574

PATIENT
  Age: 82 Year
  Sex: Female

DRUGS (9)
  1. AREDIA [Suspect]
  2. AVAPRO [Concomitant]
  3. ZIAC [Concomitant]
  4. VIOXX [Concomitant]
  5. SYNTHROID [Concomitant]
  6. ALLEGRA [Concomitant]
  7. LIPITOR [Concomitant]
  8. WARFARIN SODIUM [Concomitant]
  9. FEMARA [Concomitant]

REACTIONS (2)
  - BLOOD CREATININE INCREASED [None]
  - RENAL FAILURE [None]
